FAERS Safety Report 17733150 (Version 1)
Quarter: 2020Q2

REPORT INFORMATION
  Report Type: Spontaneous
  Country: US (occurrence: US)
  Receive Date: 20200430
  Receipt Date: 20200430
  Transmission Date: 20200714
  Serious: Yes (Hospitalization)
  Sender: FDA-Public Use
  Company Number: None

PATIENT
  Age: 74 Year
  Sex: Female
  Weight: 97.8 kg

DRUGS (2)
  1. FEMARA [Suspect]
     Active Substance: LETROZOLE
     Dates: start: 20200419
  2. PALBOCICLIB (PD0332991) [Suspect]
     Active Substance: PALBOCICLIB
     Dates: start: 20200419

REACTIONS (4)
  - Chest pain [None]
  - Fatigue [None]
  - Dyspnoea [None]
  - Faeces discoloured [None]

NARRATIVE: CASE EVENT DATE: 20200420
